FAERS Safety Report 7389596-8 (Version None)
Quarter: 2011Q2

REPORT INFORMATION
  Report Type: 
  Country: None (occurrence: None)
  Receive Date: 20110401
  Receipt Date: 20110321
  Transmission Date: 20111010
  Serious: Yes (Hospitalization)
  Sender: FDA-Public Use
  Company Number: US-SANOFI-AVENTIS-2011SA017055

PATIENT
  Age: 59 Year
  Sex: Female

DRUGS (3)
  1. PIOGLITAZONE [Suspect]
     Route: 048
     Dates: start: 20090701, end: 20100624
  2. GLIMEPIRIDE [Suspect]
     Route: 048
     Dates: start: 20090507
  3. METFORMIN HCL [Suspect]
     Route: 048

REACTIONS (1)
  - PNEUMONIA [None]
